FAERS Safety Report 6728723-X (Version None)
Quarter: 2010Q2

REPORT INFORMATION
  Report Type: 
  Country: None (occurrence: None)
  Receive Date: 20100517
  Receipt Date: 20100507
  Transmission Date: 20101027
  Serious: Yes (Disabling)
  Sender: FDA-Public Use
  Company Number: FR-GENENTECH-301627

PATIENT
  Sex: Male

DRUGS (20)
  1. MABTHERA [Suspect]
     Indication: HODGKIN'S DISEASE
     Dosage: 650 MG, SINGLE
     Route: 042
     Dates: start: 20091223, end: 20091223
  2. ONCOVIN [Suspect]
     Indication: HODGKIN'S DISEASE
     Dosage: 1.75 MG, SINGLE
     Route: 042
     Dates: start: 20091223, end: 20091223
  3. ONCOVIN [Suspect]
     Dosage: 2 MG, UNK
     Route: 042
     Dates: start: 20100120, end: 20100120
  4. ONCOVIN [Suspect]
     Dosage: 2 MG, UNK
     Route: 042
     Dates: start: 20100128, end: 20100128
  5. ONCOVIN [Suspect]
     Dosage: 2 MG, UNK
     Route: 042
     Dates: start: 20100222, end: 20100222
  6. ONCOVIN [Suspect]
     Dosage: 2 MG, UNK
     Route: 042
     Dates: start: 20100301, end: 20100301
  7. ENDOXAN [Suspect]
     Indication: HODGKIN'S DISEASE
     Dosage: 520 MG, SINGLE
     Route: 042
     Dates: start: 20091223, end: 20091223
  8. SOLUPRED [Suspect]
     Indication: HODGKIN'S DISEASE
     Dosage: UNK
     Route: 042
     Dates: start: 20091223, end: 20091223
  9. VEPESID [Suspect]
     Indication: HODGKIN'S DISEASE
     Dosage: 210 MG, UNK
     Route: 042
     Dates: start: 20100113, end: 20100117
  10. VEPESID [Suspect]
     Dosage: 220 MG, UNK
     Route: 042
     Dates: start: 20100215, end: 20100215
  11. VEPESID [Suspect]
     Dosage: 220 MG, UNK
     Route: 042
     Dates: start: 20100217, end: 20100219
  12. ADRIBLASTINE [Suspect]
     Indication: HODGKIN'S DISEASE
     Dosage: 68 MG, SINGLE
     Route: 042
     Dates: start: 20100215, end: 20100215
  13. ADRIBLASTINE [Suspect]
     Dosage: 68 MG, UNK
     Route: 042
     Dates: start: 20100301, end: 20100301
  14. FASTURTEC [Concomitant]
     Indication: DRUG USE FOR UNKNOWN INDICATION
     Dosage: UNK
  15. LASIX [Concomitant]
     Indication: DRUG USE FOR UNKNOWN INDICATION
     Dosage: UNK
  16. LOVENOX [Concomitant]
     Indication: DRUG USE FOR UNKNOWN INDICATION
     Dosage: UNK
  17. ATARAX [Concomitant]
     Indication: DRUG USE FOR UNKNOWN INDICATION
     Dosage: UNK
  18. PERFALGAN [Concomitant]
     Indication: DRUG USE FOR UNKNOWN INDICATION
     Dosage: UNK
  19. BACTRIM [Concomitant]
     Indication: DRUG USE FOR UNKNOWN INDICATION
     Dosage: UNK
  20. LEXOMIL [Concomitant]
     Indication: DRUG USE FOR UNKNOWN INDICATION
     Dosage: UNK

REACTIONS (5)
  - DISORIENTATION [None]
  - DYSARTHRIA [None]
  - MEMORY IMPAIRMENT [None]
  - NERVOUS SYSTEM DISORDER [None]
  - TREMOR [None]
